FAERS Safety Report 6920956-2 (Version None)
Quarter: 2010Q3

REPORT INFORMATION
  Report Type: 
  Country: None (occurrence: None)
  Receive Date: 20100812
  Receipt Date: 20100803
  Transmission Date: 20110219
  Serious: Yes (Other)
  Sender: FDA-Public Use
  Company Number: US-JNJFOC-20100704515

PATIENT
  Sex: Female
  Weight: 45.36 kg

DRUGS (15)
  1. REMICADE [Suspect]
     Indication: CROHN'S DISEASE
     Route: 042
  2. REMICADE [Suspect]
     Route: 042
  3. REMICADE [Suspect]
     Route: 042
  4. ALLOPURINOL [Concomitant]
     Indication: GOUT
  5. LOMOTIL [Concomitant]
     Indication: CROHN'S DISEASE
  6. METOPROLOL TARTRATE [Concomitant]
     Indication: HYPERTENSION
  7. CALCIUM WITH VITAMIN D [Concomitant]
  8. MULTI-VITAMINS [Concomitant]
  9. ROPINIROLE [Concomitant]
     Indication: RESTLESS LEGS SYNDROME
     Route: 048
  10. VALPROIC ACID [Concomitant]
     Indication: CONVULSION
  11. IRON [Concomitant]
  12. ACETAMINOPHEN [Concomitant]
     Indication: FEELING OF BODY TEMPERATURE CHANGE
     Dosage: PREMEDICATION AND EVERY 4 HOURS FOR ACHES OR TEMPERATURE CHANGE GREATER THAN 2 DEGREES FAHRENHEIT
     Route: 048
  13. ACETAMINOPHEN [Concomitant]
     Indication: PAIN
     Dosage: PREMEDICATION AND EVERY 4 HOURS FOR ACHES OR TEMPERATURE CHANGE GREATER THAN 2 DEGREES FAHRENHEIT
     Route: 048
  14. ACETAMINOPHEN [Concomitant]
     Indication: PREMEDICATION
     Dosage: PREMEDICATION AND EVERY 4 HOURS FOR ACHES OR TEMPERATURE CHANGE GREATER THAN 2 DEGREES FAHRENHEIT
     Route: 048
  15. DIPHENHYDRAMINE [Concomitant]
     Indication: PREMEDICATION
     Dosage: 25-50 MG PREMEDICATION AND EVERY 4 HOURS FOR SOB, URTICARIA, PRURITIS
     Route: 048

REACTIONS (4)
  - CELLULITIS [None]
  - DIARRHOEA [None]
  - FOOT FRACTURE [None]
  - GOUT [None]
